FAERS Safety Report 8522411 (Version 5)
Quarter: 2015Q4

REPORT INFORMATION
  Report Type: Spontaneous
  Country: US (occurrence: US)
  Receive Date: 20120419
  Receipt Date: 20151105
  Transmission Date: 20160305
  Serious: No
  Sender: FDA-Public Use
  Company Number: US-PFIZER INC-2012093609

PATIENT
  Age: 67 Year
  Sex: Female

DRUGS (37)
  1. LYRICA [Suspect]
     Active Substance: PREGABALIN
     Indication: NEUROPATHY PERIPHERAL
     Dosage: 100 MG, 2X/DAY
     Route: 048
  2. PRAVACHOL [Suspect]
     Active Substance: PRAVASTATIN SODIUM
     Indication: BLOOD CHOLESTEROL ABNORMAL
     Dosage: UNK
     Dates: end: 20070804
  3. VITAMIN B12 [Concomitant]
     Active Substance: CYANOCOBALAMIN
     Dosage: 2500 MG, 1 AT NIGHT
  4. FISH OIL [Concomitant]
     Active Substance: FISH OIL
     Dosage: 1400 MG, 1 IN MORNING AND AT NIGHT
  5. ASPIRIN. [Concomitant]
     Active Substance: ASPIRIN
     Dosage: 81 MG, 1 AT NIGHT
  6. PAXIL [Suspect]
     Active Substance: PAROXETINE HYDROCHLORIDE
     Indication: HOT FLUSH
     Dosage: UNK
     Dates: end: 200708
  7. ACETYLSALICYLIC ACID [Concomitant]
     Active Substance: ASPIRIN
     Indication: HEART RATE IRREGULAR
     Dosage: 81 MG, 1 AT NIGHT
  8. JANUVIA [Concomitant]
     Active Substance: SITAGLIPTIN PHOSPHATE
     Dosage: 100 MG, 1 IN THE MORNING
  9. OMEGA 3 [Concomitant]
     Active Substance: OMEGA-3 FATTY ACIDS
     Dosage: 1400 MG,1 IN MORNING AND AT NIGHT
  10. OMEGA ESSENTIALS [Concomitant]
     Active Substance: DOCONEXENT\ ICOSAPENT\ FISH OIL\ OMEGA-3 FATTY ACIDS
     Dosage: 1 TSP (TEASPOON) MORNING
  11. CALCIUM [Concomitant]
     Active Substance: CALCIUM
     Dosage: 600 MG,1 AT NIGHT
  12. EFFEXOR XR [Concomitant]
     Active Substance: VENLAFAXINE HYDROCHLORIDE
     Dosage: 75 MG, 1 IN THE MORNING
  13. LYRICA [Suspect]
     Active Substance: PREGABALIN
     Indication: DIABETES MELLITUS
     Dosage: 150 MG, 1X/DAY (1 NIGHT)
     Route: 048
  14. TRICOR [Suspect]
     Active Substance: FENOFIBRATE
     Indication: BLOOD CHOLESTEROL ABNORMAL
     Dosage: UNK
     Dates: end: 20070804
  15. ACETYLSALICYLIC ACID [Concomitant]
     Active Substance: ASPIRIN
     Indication: PROPHYLAXIS
  16. GLYBURIDE. [Concomitant]
     Active Substance: GLYBURIDE
     Dosage: 5 MG (2 OF 2.5 MG), IN MORNING AND AT NIGHT
     Dates: end: 2012
  17. LANTUS SOLOSTAR [Concomitant]
     Active Substance: INSULIN GLARGINE
     Dosage: 40 UNIT IN MORNING 18 UNIT AT NIGHT
  18. ZOCOR [Suspect]
     Active Substance: SIMVASTATIN
     Indication: BLOOD CHOLESTEROL ABNORMAL
     Dosage: UNK
     Dates: end: 20070804
  19. CIPROFLOXACIN. [Concomitant]
     Active Substance: CIPROFLOXACIN
     Dosage: UNK
  20. LANTUS [Concomitant]
     Active Substance: INSULIN GLARGINE
     Dosage: 10 UNITS, AT BEDTIME
  21. MINOCYCLINE\MINOCYCLINE HYDROCHLORIDE [Concomitant]
     Active Substance: MINOCYCLINE\MINOCYCLINE HYDROCHLORIDE
     Dosage: 100 MG, 1 AT BEDTIME
  22. VITAMIN C [Concomitant]
     Active Substance: ASCORBIC ACID
     Dosage: 500 MG, 1 AT NIGHT
  23. LYRICA [Suspect]
     Active Substance: PREGABALIN
     Dosage: 100 MG 1 NIGHT
     Route: 048
  24. SAVELLA [Concomitant]
     Active Substance: MILNACIPRAN HYDROCHLORIDE
     Dosage: UNK
  25. SOTALOL HYDROCHLORIDE. [Concomitant]
     Active Substance: SOTALOL HYDROCHLORIDE
     Indication: HEART RATE IRREGULAR
     Dosage: 80 MG, ONE IN MORNING AND AT NIGHT
     Dates: start: 20091116
  26. CYMBALTA [Concomitant]
     Active Substance: DULOXETINE HYDROCHLORIDE
     Indication: NEUROPATHY PERIPHERAL
     Dosage: 60 MG, 1 IN MORNING AND AT NIGHT
     Dates: start: 20071217, end: 20130311
  27. ACTOS [Concomitant]
     Active Substance: PIOGLITAZONE HYDROCHLORIDE
     Dosage: UNK
     Dates: end: 2011
  28. CRESTOR [Suspect]
     Active Substance: ROSUVASTATIN CALCIUM
     Indication: BLOOD CHOLESTEROL ABNORMAL
     Dosage: UNK
     Dates: end: 20070804
  29. PAXIL [Suspect]
     Active Substance: PAROXETINE HYDROCHLORIDE
     Dosage: UNK
     Dates: end: 20071207
  30. ZETIA [Concomitant]
     Active Substance: EZETIMIBE
     Dosage: 10 MG, 1 IN THE MORNING
  31. MULTIVITAMINS [Concomitant]
     Active Substance: VITAMINS
     Dosage: 1 DF, ONE IN THE MORNING
  32. LANTUS SOLOSTAR [Concomitant]
     Active Substance: INSULIN GLARGINE
     Dosage: 44 UNITS BREAKFAST, 22 UNITS DINNER
  33. HUMALOG [Concomitant]
     Active Substance: INSULIN LISPRO
     Dosage: 15-25 UNITS ACCORDING TO BLOOD SUGAR READINGS
  34. LIPITOR [Suspect]
     Active Substance: ATORVASTATIN CALCIUM
     Indication: BLOOD CHOLESTEROL ABNORMAL
     Dosage: UNK
     Dates: end: 20070804
  35. COZAAR [Concomitant]
     Active Substance: LOSARTAN POTASSIUM
     Dosage: 50 MG,1 IN THE MORNING
  36. METFORMIN [Concomitant]
     Active Substance: METFORMIN HYDROCHLORIDE
     Dosage: 1000 MG (2 OF 500 MG), IN MORNING AND AT NIGHT
  37. CINNAMON. [Concomitant]
     Active Substance: CINNAMON
     Dosage: 1000 MG, 1 MORNING-1 NIGHT

REACTIONS (3)
  - Musculoskeletal stiffness [Unknown]
  - Myalgia [Unknown]
  - Muscular weakness [Unknown]
